FAERS Safety Report 8082587-3 (Version None)
Quarter: 2012Q1

REPORT INFORMATION
  Report Type: 
  Country: None (occurrence: None)
  Receive Date: 20120127
  Receipt Date: 20110222
  Transmission Date: 20120608
  Serious: No
  Sender: FDA-Public Use
  Company Number: US-ABBOTT-11P-163-0707043-00

PATIENT
  Age: 46 Year
  Sex: Female

DRUGS (16)
  1. NEXIUM [Concomitant]
     Indication: GASTROOESOPHAGEAL REFLUX DISEASE
     Route: 048
  2. VITAMIN D [Concomitant]
     Indication: PRODUCT USED FOR UNKNOWN INDICATION
  3. FLECAINIDE ACETATE [Concomitant]
     Indication: ARRHYTHMIA
     Route: 048
  4. HUMIRA [Suspect]
     Indication: CROHN'S DISEASE
     Dates: start: 20100901
  5. TOPROL-XL [Concomitant]
     Indication: HEART RATE IRREGULAR
     Route: 048
  6. ASCORBIC ACID [Concomitant]
     Indication: PRODUCT USED FOR UNKNOWN INDICATION
     Route: 048
  7. PENTASA [Concomitant]
     Indication: CROHN'S DISEASE
     Route: 048
  8. TOPROL-XL [Concomitant]
     Indication: HYPERTENSION
  9. FIORINAL [Concomitant]
     Indication: MIGRAINE
     Route: 048
  10. VITAMIN B-12 [Concomitant]
     Indication: PRODUCT USED FOR UNKNOWN INDICATION
  11. AVAPRO [Concomitant]
     Indication: HYPERTENSION
     Route: 048
  12. VITAMIN B COMPLEX CAP [Concomitant]
     Indication: PRODUCT USED FOR UNKNOWN INDICATION
  13. VITAMIN E [Concomitant]
     Indication: PRODUCT USED FOR UNKNOWN INDICATION
  14. HYOMAX SL [Concomitant]
     Indication: ABDOMINAL PAIN UPPER
  15. LOESTRIN 1.5/30 [Concomitant]
     Indication: CONTRACEPTION
  16. CALCIUM CITRATE W/VITAMIN D NOS [Concomitant]
     Indication: PRODUCT USED FOR UNKNOWN INDICATION
     Route: 048

REACTIONS (2)
  - INJECTION SITE PAIN [None]
  - SINUSITIS [None]
